FAERS Safety Report 8906363 (Version 1)
Quarter: 2012Q4

REPORT INFORMATION
  Report Type: Spontaneous
  Country: US (occurrence: None)
  Receive Date: 20121108
  Receipt Date: 20121108
  Transmission Date: 20130627
  Serious: Yes (Hospitalization)
  Sender: FDA-Public Use
  Company Number: DKLU1086105

PATIENT
  Age: 13 Month
  Sex: Male

DRUGS (6)
  1. SABRIL [Suspect]
     Indication: INFANTILE SPASMS
     Dates: start: 20120927
  2. SABRIL [Suspect]
     Indication: INFANTILE SPASMS
     Dates: start: 20120927
  3. PHENOBARBITAL [Concomitant]
  4. VALIUM [Concomitant]
  5. KEPPRA (LEVETIRACETAM) [Concomitant]
  6. ZONEGRAN (ZONISAMIDE) [Concomitant]

REACTIONS (2)
  - Upper respiratory tract infection [None]
  - Cellulitis [None]
